FAERS Safety Report 5363120-3 (Version None)
Quarter: 2007Q2

REPORT INFORMATION
  Report Type: 
  Country: None (occurrence: None)
  Receive Date: 20070615
  Receipt Date: 20070613
  Transmission Date: 20071010
  Serious: Yes (Death, Life-Threatening)
  Sender: FDA-Public Use
  Company Number: TCI2007A02059

PATIENT
  Age: 80 Year
  Sex: Female

DRUGS (6)
  1. LANSOPRAZOLE [Suspect]
     Indication: ABDOMINAL PAIN UPPER
     Dosage: 30 MG (30 MG, 1 IN 1 D) INTRAVENOUS
     Route: 042
     Dates: start: 20070326, end: 20070329
  2. LANSOPRAZOLE [Suspect]
     Indication: ANAEMIA
     Dosage: 30 MG (30 MG, 1 IN 1 D) INTRAVENOUS
     Route: 042
     Dates: start: 20070326, end: 20070329
  3. CEFAZOLIN [Suspect]
     Indication: INFECTION PROPHYLAXIS
     Dosage: 1 G (1 G, 1 IN 1 D) INTRAVENOUS DRIP
     Route: 041
     Dates: start: 20070322, end: 20070328
  4. ESPO (EPOETIN ALFA) (INJECTION) [Concomitant]
  5. FESIN (SACCHARATED IRON OXIDE) (INJECTION) [Concomitant]
  6. OXAROL (MAXACALCITOL) (INJECTION) [Concomitant]

REACTIONS (6)
  - C-REACTIVE PROTEIN INCREASED [None]
  - DRUG INTERACTION [None]
  - LEUKOPENIA [None]
  - PYREXIA [None]
  - RESPIRATORY DISORDER [None]
  - THROMBOCYTOPENIA [None]
